FAERS Safety Report 4360992-6 (Version None)
Quarter: 2004Q2

REPORT INFORMATION
  Report Type: 
  Country: None (occurrence: None)
  Receive Date: 20040519
  Receipt Date: 20040519
  Transmission Date: 20050107
  Serious: No
  Sender: FDA-Public Use
  Company Number: None

PATIENT
  Age: 48 Year

DRUGS (2)
  1. TYLOX [Suspect]
     Indication: LOCALISED OSTEOARTHRITIS
     Dosage: ONE Q 6 H PRN, SEVERE PAIN
  2. TYLOX [Suspect]
     Indication: SPONDYLOSIS
     Dosage: ONE Q 6 H PRN, SEVERE PAIN

REACTIONS (2)
  - DRUG EFFECT DECREASED [None]
  - PHARMACEUTICAL PRODUCT COMPLAINT [None]
